FAERS Safety Report 6326512-1 (Version None)
Quarter: 2009Q3

REPORT INFORMATION
  Report Type: 
  Country: None (occurrence: None)
  Receive Date: 20090825
  Receipt Date: 20090810
  Transmission Date: 20100115
  Serious: Yes (Hospitalization)
  Sender: FDA-Public Use
  Company Number: US-RB-019765-09

PATIENT
  Age: 58 Year
  Sex: Female

DRUGS (2)
  1. MUCINEX DM [Suspect]
     Indication: PNEUMONIA
     Dosage: TOOK 3 DOSES AT LEAST TWO PILLS EACH WITHIN 4 HOURS.
     Route: 048
     Dates: start: 20090723
  2. MUCINEX DM [Suspect]
     Dosage: TOOK 3 DOSES AT LEAST TWO PILLS EACH WITHIN 4 HOURS.
     Route: 048
     Dates: start: 20090723

REACTIONS (8)
  - ACCIDENTAL OVERDOSE [None]
  - ALCOHOL USE [None]
  - COMA [None]
  - DYSPNOEA [None]
  - FEELING ABNORMAL [None]
  - LOSS OF CONSCIOUSNESS [None]
  - MUSCLE ATROPHY [None]
  - PYREXIA [None]
